FAERS Safety Report 11782063 (Version 12)
Quarter: 2018Q1

REPORT INFORMATION
  Report Type: Spontaneous
  Country: US (occurrence: US)
  Receive Date: 20151126
  Receipt Date: 20180302
  Transmission Date: 20180508
  Serious: Yes (Hospitalization)
  Sender: FDA-Public Use
  Company Number: US-ASTRAZENECA-2015SE90646

PATIENT
  Age: 29735 Day
  Sex: Female
  Weight: 55.6 kg

DRUGS (19)
  1. IRESSA [Suspect]
     Active Substance: GEFITINIB
     Indication: LUNG NEOPLASM MALIGNANT
     Route: 048
     Dates: start: 20161003
  2. OMEGA 3 [Concomitant]
     Active Substance: OMEGA-3 FATTY ACIDS
  3. IRESSA [Suspect]
     Active Substance: GEFITINIB
     Indication: LUNG NEOPLASM MALIGNANT
     Route: 048
     Dates: start: 2015
  4. IRESSA [Suspect]
     Active Substance: GEFITINIB
     Indication: LUNG NEOPLASM MALIGNANT
     Route: 048
  5. ESZOPICLONE. [Concomitant]
     Active Substance: ESZOPICLONE
  6. NEO-POLY-DEX OPTH [Concomitant]
  7. ALPRAZOLAM. [Concomitant]
     Active Substance: ALPRAZOLAM
  8. AMLODIPINE-VALSARTAN [Concomitant]
     Active Substance: AMLODIPINE\VALSARTAN
  9. MAGNESIUM [Concomitant]
     Active Substance: MAGNESIUM
  10. ROGAINE [Concomitant]
     Active Substance: MINOXIDIL
     Indication: ALOPECIA
     Route: 064
  11. IRESSA [Suspect]
     Active Substance: GEFITINIB
     Indication: LUNG NEOPLASM MALIGNANT
     Route: 048
     Dates: start: 20161125
  12. IRESSA [Suspect]
     Active Substance: GEFITINIB
     Indication: LUNG NEOPLASM MALIGNANT
     Route: 048
  13. THYROID [Concomitant]
     Active Substance: LEVOTHYROXINE\LIOTHYRONINE
  14. BYSTOLIC [Concomitant]
     Active Substance: NEBIVOLOL HYDROCHLORIDE
  15. IRESSA [Suspect]
     Active Substance: GEFITINIB
     Indication: LUNG NEOPLASM MALIGNANT
     Route: 048
     Dates: start: 20150906
  16. IRESSA [Suspect]
     Active Substance: GEFITINIB
     Indication: LUNG NEOPLASM MALIGNANT
     Route: 048
     Dates: start: 20171101, end: 20180220
  17. SERTRALINE [Concomitant]
     Active Substance: SERTRALINE HYDROCHLORIDE
  18. IRESSA [Suspect]
     Active Substance: GEFITINIB
     Indication: LUNG NEOPLASM MALIGNANT
     Route: 048
     Dates: start: 201508
  19. COENZYME Q10 [Concomitant]
     Active Substance: UBIDECARENONE

REACTIONS (22)
  - Diarrhoea [Not Recovered/Not Resolved]
  - Abdominal pain [Recovered/Resolved]
  - Vulvovaginal discomfort [Not Recovered/Not Resolved]
  - Dehydration [Not Recovered/Not Resolved]
  - Urine analysis abnormal [Not Recovered/Not Resolved]
  - Trichorrhexis [Unknown]
  - Asthenia [Not Recovered/Not Resolved]
  - Vomiting [Unknown]
  - Eye disorder [Unknown]
  - Abdominal discomfort [Unknown]
  - Fatigue [Unknown]
  - Dry skin [Not Recovered/Not Resolved]
  - Skin exfoliation [Unknown]
  - Rash pustular [Not Recovered/Not Resolved]
  - Nausea [Unknown]
  - Off label use [Unknown]
  - Decreased appetite [Unknown]
  - Acne [Unknown]
  - Weight decreased [Unknown]
  - Throat irritation [Not Recovered/Not Resolved]
  - Rash generalised [Unknown]
  - Alopecia [Not Recovered/Not Resolved]

NARRATIVE: CASE EVENT DATE: 20150908
